FAERS Safety Report 19608569 (Version 1)
Quarter: 2021Q3

REPORT INFORMATION
  Report Type: Spontaneous
  Country: US (occurrence: US)
  Receive Date: 20210722
  Receipt Date: 20210722
  Transmission Date: 20211014
  Serious: Yes (Other)
  Sender: FDA-Public Use
  Company Number: None

PATIENT
  Age: 48 Year
  Sex: Female

DRUGS (1)
  1. COSENTYX [Suspect]
     Active Substance: SECUKINUMAB
     Indication: ANKYLOSING SPONDYLITIS
     Dosage: :1 PEN (150MG) Q4WK SQ?
     Route: 058
     Dates: start: 20210525

REACTIONS (1)
  - Thyroid cancer [None]

NARRATIVE: CASE EVENT DATE: 20210722
